FAERS Safety Report 6649972-5 (Version None)
Quarter: 2010Q1

REPORT INFORMATION
  Report Type: 
  Country: None (occurrence: None)
  Receive Date: 20100325
  Receipt Date: 20100311
  Transmission Date: 20100710
  Serious: Yes (Hospitalization)
  Sender: FDA-Public Use
  Company Number: FR-RANBAXY-2010RR-32603

PATIENT

DRUGS (4)
  1. FLUOXETINE [Suspect]
     Dosage: UNK
  2. TIANEPTINE [Suspect]
  3. BROMAZEPAM [Suspect]
  4. ZOLPIDEM [Suspect]
     Dosage: 4 G, UNK

REACTIONS (2)
  - CARDIOGENIC SHOCK [None]
  - OVERDOSE [None]
